FAERS Safety Report 12347796 (Version 2)
Quarter: 2016Q3

REPORT INFORMATION
  Report Type: Spontaneous
  Country: US (occurrence: US)
  Receive Date: 20160509
  Receipt Date: 20160727
  Transmission Date: 20161109
  Serious: Yes (Other)
  Sender: FDA-Public Use
  Company Number: US-SA-2016SA087573

PATIENT
  Sex: Female

DRUGS (1)
  1. LEMTRADA [Suspect]
     Active Substance: ALEMTUZUMAB
     Indication: MULTIPLE SCLEROSIS
     Route: 041

REACTIONS (8)
  - Headache [Unknown]
  - Fatigue [Unknown]
  - Tooth discolouration [Unknown]
  - Rash [Recovering/Resolving]
  - Influenza [Unknown]
  - Delirium [Unknown]
  - Pain [Unknown]
  - Swelling [Unknown]
